FAERS Safety Report 14565493 (Version 2)
Quarter: 2018Q1

REPORT INFORMATION
  Report Type: Report from Study
  Country: IT (occurrence: IT)
  Receive Date: 20180223
  Receipt Date: 20180319
  Transmission Date: 20180509
  Serious: Yes (Other)
  Sender: FDA-Public Use
  Company Number: IT-ACCORD-063751

PATIENT
  Age: 70 Year
  Sex: Male
  Weight: 84 kg

DRUGS (10)
  1. CEFTRIAXONE. [Concomitant]
     Active Substance: CEFTRIAXONE
     Indication: BRONCHITIS
     Dates: start: 20180130
  2. LORAZEPAM. [Concomitant]
     Active Substance: LORAZEPAM
  3. PANTORC [Concomitant]
     Active Substance: PANTOPRAZOLE SODIUM
     Dosage: STRENGTH: 40 MG
     Dates: start: 20180126, end: 20180201
  4. METHYLPREDNISOLONE. [Concomitant]
     Active Substance: METHYLPREDNISOLONE
     Indication: BRONCHOSTENOSIS
     Dates: start: 20180130
  5. OLANZAPINA TEVA [Interacting]
     Active Substance: OLANZAPINE
     Indication: DEPRESSION
     Dosage: 2.5 MG DAILY
  6. GABAPENTIN. [Concomitant]
     Active Substance: GABAPENTIN
  7. QUETIAPINE. [Suspect]
     Active Substance: QUETIAPINE
     Indication: AGITATION
     Route: 048
  8. FUROSEMIDE S.A.L.F. [Concomitant]
     Indication: OEDEMA PERIPHERAL
     Dosage: STRENGTH: 20 MG/2 ML
     Dates: start: 20180130
  9. ANAFRANIL [Interacting]
     Active Substance: CLOMIPRAMINE HYDROCHLORIDE
     Indication: DEPRESSION
     Dosage: STRENGTH: 75 MG
     Route: 048
  10. ARIXTRA [Concomitant]
     Active Substance: FONDAPARINUX SODIUM
     Dosage: STRENGTH: 2.5 MG/0.5 ML
     Dates: start: 20180130

REACTIONS (2)
  - Drug interaction [Unknown]
  - Electrocardiogram QT prolonged [Unknown]

NARRATIVE: CASE EVENT DATE: 20180202
